FAERS Safety Report 18828507 (Version 1)
Quarter: 2021Q1

REPORT INFORMATION
  Report Type: Spontaneous
  Country: US (occurrence: US)
  Receive Date: 20210201
  Receipt Date: 20210201
  Transmission Date: 20210419
  Serious: No
  Sender: FDA-Public Use
  Company Number: US-ABBVIE-20K-163-3504464-00

PATIENT
  Age: 45 Year
  Sex: Female
  Weight: 63.56 kg

DRUGS (7)
  1. HUMIRA [Suspect]
     Active Substance: ADALIMUMAB
     Indication: SCLERITIS
     Route: 058
     Dates: start: 20200713
  2. PREDNISONE. [Concomitant]
     Active Substance: PREDNISONE
     Indication: SCLERITIS
  3. VICTOZA [Concomitant]
     Active Substance: LIRAGLUTIDE
     Indication: BLOOD GLUCOSE ABNORMAL
  4. LANTUS [Concomitant]
     Active Substance: INSULIN GLARGINE
     Indication: BLOOD GLUCOSE ABNORMAL
  5. PREDNISONE. [Concomitant]
     Active Substance: PREDNISONE
     Indication: PAIN MANAGEMENT
  6. LISINOPRIL. [Concomitant]
     Active Substance: LISINOPRIL
     Indication: HYPERTENSION
  7. PREDNISONE. [Concomitant]
     Active Substance: PREDNISONE
     Indication: INFLAMMATION

REACTIONS (6)
  - Injection site reaction [Unknown]
  - Device issue [Unknown]
  - Off label use [Not Recovered/Not Resolved]
  - Injection site erythema [Recovered/Resolved]
  - Incorrect dose administered [Unknown]
  - Injection site haemorrhage [Unknown]

NARRATIVE: CASE EVENT DATE: 20200713
